FAERS Safety Report 10237202 (Version 1)
Quarter: 2014Q1

REPORT INFORMATION
  Report Type: Spontaneous
  Country: US (occurrence: None)
  Receive Date: 20140306
  Receipt Date: 20140306
  Transmission Date: 20141002
  Serious: Yes (Disabling, Other)
  Sender: FDA-Public Use
  Company Number: 163-21880-13103644

PATIENT
  Age: 69 Year
  Sex: Male

DRUGS (3)
  1. REVLIMID [Suspect]
     Indication: PLASMA CELL MYELOMA
     Route: 048
     Dates: start: 20130904, end: 20131010
  2. LISINOPRIL (LISINOPRIL) [Concomitant]
  3. NORVASC (AMLODIPINE BESILATE) [Concomitant]

REACTIONS (5)
  - Cardiac failure congestive [None]
  - White blood cell count decreased [None]
  - Fatigue [None]
  - Platelet count decreased [None]
  - Anaemia [None]
